FAERS Safety Report 10173952 (Version 2)
Quarter: 2014Q2

REPORT INFORMATION
  Report Type: Spontaneous
  Country: US (occurrence: US)
  Receive Date: 20140515
  Receipt Date: 20140618
  Transmission Date: 20141212
  Serious: Yes (Hospitalization)
  Sender: FDA-Public Use
  Company Number: US-BAYER-2014-071388

PATIENT
  Age: 29 Year
  Sex: Female

DRUGS (2)
  1. MIRENA [Suspect]
     Indication: CONTRACEPTION
     Dosage: 20 MCG/24HR, CONT
     Route: 015
     Dates: start: 20130628, end: 20140214
  2. MIRENA [Suspect]
     Indication: CONTRACEPTION
     Dosage: 20 MCG/24HR, CONT
     Route: 015
     Dates: start: 200808, end: 20111115

REACTIONS (9)
  - Uterine perforation [None]
  - Alopecia [None]
  - Weight increased [None]
  - Menstruation irregular [None]
  - Menorrhagia [Recovered/Resolved]
  - Device issue [None]
  - Pain [None]
  - Injury [None]
  - Emotional distress [None]
